FAERS Safety Report 7150606-4 (Version None)
Quarter: 2010Q4

REPORT INFORMATION
  Report Type: 
  Country: None (occurrence: None)
  Receive Date: 20101206
  Receipt Date: 20101206
  Transmission Date: 20110411
  Serious: No
  Sender: FDA-Public Use
  Company Number: None

PATIENT
  Sex: Female

DRUGS (1)
  1. XELODA [Suspect]
     Indication: COLON CANCER
     Dosage: 1500MG BID X 14 DAYS BUCCAL
     Route: 002
     Dates: start: 20100402, end: 20101122

REACTIONS (1)
  - DEATH [None]
